FAERS Safety Report 8213728-2 (Version None)
Quarter: 2012Q1

REPORT INFORMATION
  Report Type: 
  Country: None (occurrence: None)
  Receive Date: 20120315
  Receipt Date: 20120306
  Transmission Date: 20120608
  Serious: Yes (Other)
  Sender: FDA-Public Use
  Company Number: US-ASTRAZENECA-2012SE16184

PATIENT
  Age: 88 Year
  Sex: Female

DRUGS (9)
  1. CVS VITAMIN B12 [Concomitant]
  2. BROVANA [Concomitant]
     Dosage: 15 MCG/2ML QID PRN
  3. ARICEPT [Concomitant]
  4. ACIDOPHILUS [Concomitant]
  5. CLOTRIMAZOLE AND BETAMETHASONE DIPROPIONATE [Concomitant]
     Indication: RASH
     Dosage: 1-0.05% BID PRN
  6. PRILOSEC [Suspect]
     Route: 048
  7. VENLAFAXINE HCL [Concomitant]
  8. SEROQUEL [Suspect]
     Route: 048
  9. ASPIRIN [Concomitant]
     Route: 048

REACTIONS (25)
  - ESSENTIAL HYPERTENSION [None]
  - VOMITING [None]
  - CHRONIC RESPIRATORY FAILURE [None]
  - SENILE DEMENTIA [None]
  - CERUMEN IMPACTION [None]
  - OSTEOARTHRITIS [None]
  - ANXIETY [None]
  - COLITIS [None]
  - LOCALISED INFECTION [None]
  - PALPITATIONS [None]
  - BACK PAIN [None]
  - HYPOXIA [None]
  - MENTAL DISORDER [None]
  - INTERSTITIAL LUNG DISEASE [None]
  - DECUBITUS ULCER [None]
  - FATIGUE [None]
  - MALAISE [None]
  - PEPTIC ULCER [None]
  - GASTROINTESTINAL HAEMORRHAGE [None]
  - GASTROENTERITIS [None]
  - TYPE 2 DIABETES MELLITUS [None]
  - CARDIAC FAILURE CONGESTIVE [None]
  - CANDIDIASIS [None]
  - COUGH [None]
  - ASPHYXIA [None]
